FAERS Safety Report 5648480-8 (Version None)
Quarter: 2008Q1

REPORT INFORMATION
  Report Type: 
  Country: None (occurrence: None)
  Receive Date: 20080229
  Receipt Date: 20080213
  Transmission Date: 20080703
  Serious: Yes (Hospitalization)
  Sender: FDA-Public Use
  Company Number: S08-FRA-00696-01

PATIENT
  Age: 78 Year
  Sex: Male

DRUGS (13)
  1. ESCITALOPRAM [Suspect]
     Dosage: 15 MG QD PO
     Route: 048
     Dates: start: 20070401
  2. ZOLPIDEM [Suspect]
     Dosage: 10 MG QD PO
     Route: 048
     Dates: start: 20070401
  3. PRAZEPAM [Suspect]
     Dosage: 10 MG TID PO
     Route: 048
     Dates: start: 20070401
  4. MEPRONIZINE [Suspect]
     Dosage: 0.5 QD PO
     Route: 048
     Dates: start: 20070401
  5. DOXAZOSIN MESYLATE [Concomitant]
  6. ASPIRIN [Concomitant]
  7. FENOFIBRATE [Concomitant]
  8. FUROSEMIDE [Concomitant]
  9. EUPHYTOSE [Concomitant]
  10. METFORMIN HCL [Concomitant]
  11. DUPHALAC [Concomitant]
  12. ACETAMINOPHEN [Concomitant]
  13. ALMOND OIL (PRUNUS DULCIS OIL) [Concomitant]

REACTIONS (7)
  - BLOOD GLUCOSE INCREASED [None]
  - CREATININE RENAL CLEARANCE DECREASED [None]
  - FALL [None]
  - HAEMOGLOBIN DECREASED [None]
  - LIMB INJURY [None]
  - THROMBOPHLEBITIS SUPERFICIAL [None]
  - TRAUMATIC HAEMATOMA [None]
